FAERS Safety Report 6264389-3 (Version None)
Quarter: 2009Q3

REPORT INFORMATION
  Report Type: 
  Country: None (occurrence: None)
  Receive Date: 20090710
  Receipt Date: 20090702
  Transmission Date: 20100115
  Serious: Yes (Hospitalization)
  Sender: FDA-Public Use
  Company Number: B0581672A

PATIENT
  Age: 33 Year
  Sex: Female
  Weight: 73 kg

DRUGS (2)
  1. ZYBAN [Suspect]
     Indication: SMOKING CESSATION THERAPY
     Route: 048
     Dates: start: 20090513, end: 20090515
  2. NORDETTE-28 [Concomitant]
     Indication: CONTRACEPTION
     Dosage: 1 PER DAY
     Route: 048
     Dates: start: 20090513

REACTIONS (4)
  - EAR PAIN [None]
  - EYE SWELLING [None]
  - SWELLING FACE [None]
  - URTICARIA [None]
